FAERS Safety Report 10039184 (Version 1)
Quarter: 2014Q1

REPORT INFORMATION
  Report Type: Spontaneous
  Country: US (occurrence: None)
  Receive Date: 20140306
  Receipt Date: 20140306
  Transmission Date: 20141002
  Serious: Yes (Hospitalization)
  Sender: FDA-Public Use
  Company Number: 163-21880-13073287

PATIENT
  Age: 72 Year
  Sex: Male
  Weight: 76.2 kg

DRUGS (10)
  1. REVLIMID [Suspect]
     Indication: PLASMA CELL MYELOMA
     Dosage: 25 MG, 21 IN 28 D, PO
     Route: 048
     Dates: start: 20130123
  2. METOPROLOL (METOPROLOL) [Concomitant]
  3. ASPIRIN (ACETYLSALICYLIC ACID) [Concomitant]
  4. NEXIUM (ESOMEPRAZOLE) [Concomitant]
  5. FUROSEMIDE (FUROSEMIDE) [Concomitant]
  6. GABAPENTIN (GABAPENTIN) [Concomitant]
  7. OXYCONTIN (OXYCODONE HYDROCHLORIDE) [Concomitant]
  8. OXYCODONE (OXYCODONE) [Concomitant]
  9. FOLIC ACID (FOLIC ACID) [Concomitant]
  10. POTASSIUM CHLORIDE (POTASSIUM CHLORIDE) [Concomitant]

REACTIONS (1)
  - Coronary artery disease [None]
